FAERS Safety Report 19845848 (Version 2)
Quarter: 2021Q3

REPORT INFORMATION
  Report Type: Report from Study
  Country: FR (occurrence: FR)
  Receive Date: 20210916
  Receipt Date: 20210924
  Transmission Date: 20211014
  Serious: Yes (Death, Other)
  Sender: FDA-Public Use
  Company Number: FR-GILEAD-2021-0548391

PATIENT
  Sex: Female
  Weight: 45 kg

DRUGS (15)
  1. SOLU?MEDROL [Concomitant]
     Active Substance: METHYLPREDNISOLONE SODIUM SUCCINATE
  2. DEXCHLORPHENIRAMINE [Concomitant]
     Active Substance: DEXCHLORPHENIRAMINE
  3. ONDANSETRON [Concomitant]
     Active Substance: ONDANSETRON
  4. METHYLPREDNISOLONE. [Concomitant]
     Active Substance: METHYLPREDNISOLONE
     Dosage: UNK
     Dates: start: 20210907
  5. EUPANTOL [Concomitant]
     Active Substance: PANTOPRAZOLE SODIUM
     Dosage: UNK
     Dates: start: 20210826
  6. FUROSEMIDE RENAUDIN [Concomitant]
     Active Substance: FUROSEMIDE
     Dosage: UNK
     Dates: start: 20210827
  7. PRIMPERAN [Concomitant]
     Active Substance: METOCLOPRAMIDE HYDROCHLORIDE
     Dosage: UNK
     Dates: start: 20210826
  8. SACITUZUMAB GOVITECAN. [Suspect]
     Active Substance: SACITUZUMAB GOVITECAN
     Indication: BREAST CANCER METASTATIC
     Dosage: 450 MG
     Route: 042
     Dates: start: 20210907
  9. PARACETAMOL [Concomitant]
     Active Substance: ACETAMINOPHEN
  10. ACTISKENAN [Concomitant]
     Active Substance: MORPHINE SULFATE
     Dosage: UNK
     Dates: start: 20210902, end: 20210903
  11. SCOPOLAMINE BROMIDE [Concomitant]
     Dosage: UNK
     Dates: start: 20210907
  12. HALAVEN [Concomitant]
     Active Substance: ERIBULIN MESYLATE
  13. MORPHINE [Concomitant]
     Active Substance: MORPHINE
     Dosage: UNK
     Dates: start: 20210828
  14. ATROPINE. [Concomitant]
     Active Substance: ATROPINE
  15. MIDAZOLAM ACCORD [Concomitant]
     Active Substance: MIDAZOLAM HYDROCHLORIDE
     Dosage: UNK
     Dates: start: 20210907

REACTIONS (1)
  - Breast cancer metastatic [Fatal]
